FAERS Safety Report 5113735-2 (Version None)
Quarter: 2006Q3

REPORT INFORMATION
  Report Type: 
  Country: None (occurrence: None)
  Receive Date: 20060921
  Receipt Date: 20060921
  Transmission Date: 20061208
  Serious: Yes (Hospitalization)
  Sender: FDA-Public Use
  Company Number: None

PATIENT
  Age: 19 Year
  Sex: Male
  Weight: 75 kg

DRUGS (4)
  1. CEFADROXIL [Suspect]
     Indication: SINUSITIS
     Dosage: 500 MG PO BID
     Route: 048
     Dates: start: 20060324, end: 20060326
  2. DESONIDE [Concomitant]
  3. CLOBETASOLE [Concomitant]
  4. DAPSONE [Concomitant]

REACTIONS (3)
  - HERPES SIMPLEX [None]
  - MOUTH ULCERATION [None]
  - RASH [None]
